FAERS Safety Report 7225326-8 (Version None)
Quarter: 2011Q1

REPORT INFORMATION
  Report Type: 
  Country: None (occurrence: None)
  Receive Date: 20110113
  Receipt Date: 20110111
  Transmission Date: 20110831
  Serious: Yes (Death)
  Sender: FDA-Public Use
  Company Number: US-JNJFOC-20110102052

PATIENT
  Age: 57 Year
  Sex: Female

DRUGS (2)
  1. ACETAMINOPHEN W/ CODEINE [Suspect]
     Indication: DRUG ABUSE
     Route: 048
  2. CARISOPRODOL [Suspect]
     Indication: DRUG ABUSE
     Route: 048

REACTIONS (2)
  - DRUG ABUSE [None]
  - TOXICITY TO VARIOUS AGENTS [None]
